FAERS Safety Report 8363234-X (Version None)
Quarter: 2012Q2

REPORT INFORMATION
  Report Type: 
  Country: None (occurrence: None)
  Receive Date: 20120516
  Receipt Date: 20111130
  Transmission Date: 20120825
  Serious: No
  Sender: FDA-Public Use
  Company Number: US-ALEXION-A201101877

PATIENT
  Sex: Female

DRUGS (3)
  1. SOLIRIS [Suspect]
     Dosage: 1200 MG, Q2W
     Route: 042
     Dates: start: 20111024
  2. MENINGOCOCCAL VACCINE [Suspect]
  3. SOLIRIS [Suspect]
     Indication: PAROXYSMAL NOCTURNAL HAEMOGLOBINURIA
     Dosage: 900 MG, EVERY 12-14 DAYS
     Route: 042
     Dates: start: 20080201

REACTIONS (5)
  - ANXIETY [None]
  - OROPHARYNGEAL PAIN [None]
  - FEELING HOT [None]
  - MYALGIA [None]
  - MUSCULOSKELETAL PAIN [None]
